FAERS Safety Report 17897965 (Version 4)
Quarter: 2020Q4

REPORT INFORMATION
  Report Type: Report from Study
  Country: US (occurrence: US)
  Receive Date: 20200615
  Receipt Date: 20201106
  Transmission Date: 20210113
  Serious: Yes (Hospitalization, Other)
  Sender: FDA-Public Use
  Company Number: NVSC2020US165940

PATIENT
  Age: 64 Year
  Sex: Female

DRUGS (4)
  1. MAYZENT [Suspect]
     Active Substance: SIPONIMOD
     Indication: MULTIPLE SCLEROSIS
     Dosage: 2 MG, QD
     Route: 048
  2. WELLFERON [Concomitant]
     Active Substance: INTERFERON ALFA-N1
     Indication: FATIGUE
  3. MAYZENT [Suspect]
     Active Substance: SIPONIMOD
     Dosage: 1 MG, QD
     Route: 048
     Dates: start: 20200810, end: 20200819
  4. WELLFERON [Concomitant]
     Active Substance: INTERFERON ALFA-N1
     Indication: MULTIPLE SCLEROSIS
     Dosage: 150 MG, QD
     Route: 048
     Dates: start: 20200109, end: 20200819

REACTIONS (5)
  - Asthenia [Not Recovered/Not Resolved]
  - Lipids decreased [Unknown]
  - White blood cell count decreased [Unknown]
  - Gait disturbance [Unknown]
  - Seizure [Not Recovered/Not Resolved]

NARRATIVE: CASE EVENT DATE: 20200817
